FAERS Safety Report 16780057 (Version 3)
Quarter: 2019Q4

REPORT INFORMATION
  Report Type: Spontaneous
  Country: US (occurrence: US)
  Receive Date: 20190906
  Receipt Date: 20191031
  Transmission Date: 20200122
  Serious: No
  Sender: FDA-Public Use
  Company Number: US-BIOGEN-2019BI00773202

PATIENT
  Sex: Female

DRUGS (1)
  1. TYSABRI [Suspect]
     Active Substance: NATALIZUMAB
     Indication: MULTIPLE SCLEROSIS
     Dosage: INFUSED OVER 1 HOUR
     Route: 065
     Dates: start: 20190806

REACTIONS (7)
  - Dysgeusia [Unknown]
  - Nausea [Unknown]
  - Fatigue [Unknown]
  - Off label use [Not Recovered/Not Resolved]
  - Decreased appetite [Unknown]
  - Feeling cold [Unknown]
  - Hypersomnia [Unknown]
